FAERS Safety Report 9450070 (Version 1)
Quarter: 2013Q3

REPORT INFORMATION
  Report Type: Spontaneous
  Country: SG (occurrence: SG)
  Receive Date: 20130809
  Receipt Date: 20130809
  Transmission Date: 20140515
  Serious: Yes (Hospitalization, Other)
  Sender: FDA-Public Use
  Company Number: SG-BAYER-2013-093370

PATIENT
  Age: 73 Year
  Sex: Male

DRUGS (1)
  1. ACETYLSALICYLIC ACID({=100 MG) [Suspect]
     Indication: PROPHYLAXIS
     Dosage: 100 MG, DAILY
     Route: 048

REACTIONS (7)
  - Pubis fracture [None]
  - Arterial injury [Recovered/Resolved]
  - Pelvic haematoma [Recovering/Resolving]
  - Arterial haemorrhage [Recovering/Resolving]
  - Haemoglobin decreased [None]
  - Fall [Recovered/Resolved]
  - Hypotension [Recovered/Resolved]
